FAERS Safety Report 7219201-2 (Version None)
Quarter: 2011Q1

REPORT INFORMATION
  Report Type: 
  Country: None (occurrence: None)
  Receive Date: 20110103
  Receipt Date: 20101229
  Transmission Date: 20110831
  Serious: Yes (Other)
  Sender: FDA-Public Use
  Company Number: 2010MA005517

PATIENT
  Age: 3 Year
  Sex: Female

DRUGS (1)
  1. IBUPROFEN [Suspect]
     Indication: COUGH
     Dosage: 30 ML;X1;PO
     Route: 048
     Dates: start: 20101229, end: 20101229

REACTIONS (3)
  - FAILURE OF CHILD RESISTANT MECHANISM FOR PHARMACEUTICAL PRODUCT [None]
  - INCORRECT DOSE ADMINISTERED [None]
  - ACCIDENTAL DRUG INTAKE BY CHILD [None]
